APPROVED DRUG PRODUCT: EMGEL
Active Ingredient: ERYTHROMYCIN
Strength: 2%
Dosage Form/Route: GEL;TOPICAL
Application: A063107 | Product #001
Applicant: ALTANA INC
Approved: Aug 23, 1991 | RLD: No | RS: No | Type: DISCN